FAERS Safety Report 14033591 (Version 3)
Quarter: 2017Q4

REPORT INFORMATION
  Report Type: Report from Study
  Country: None (occurrence: TR)
  Receive Date: 20171003
  Receipt Date: 20171101
  Transmission Date: 20180321
  Serious: Yes (Hospitalization)
  Sender: FDA-Public Use
  Company Number: TR-ABBVIE-17K-161-2115251-00

PATIENT
  Age: 60 Year
  Sex: Male
  Weight: 53 kg

DRUGS (6)
  1. UROREC [Concomitant]
     Active Substance: SILODOSIN
     Indication: PROSTATIC DISORDER
     Route: 048
     Dates: start: 2011
  2. DUODOPA [Suspect]
     Active Substance: CARBIDOPA\LEVODOPA
     Dosage: MORNING FOSE(ML):7.50?CONTINOUS DOSE(ML):5.30?EXTRA DOSE(ML):1.00
     Route: 050
     Dates: start: 20170927
  3. LARGACTIL [Concomitant]
     Active Substance: CHLORPROMAZINE
     Indication: ANTIEMETIC SUPPORTIVE CARE
     Dosage: 3X1/4 FREQUENCY
     Route: 048
     Dates: start: 201701
  4. DUODOPA [Suspect]
     Active Substance: CARBIDOPA\LEVODOPA
     Indication: PARKINSON^S DISEASE
     Dosage: MORNING FOSE(ML):7.50?CONTINOUS DOSE(ML):5.30?EXTRA DOSE(ML):1.00
     Route: 050
     Dates: start: 20161102, end: 20170919
  5. GYREX [Concomitant]
     Indication: SLEEP DISORDER
     Route: 048
     Dates: start: 201608
  6. STALEVO [Concomitant]
     Active Substance: CARBIDOPA\ENTACAPONE\LEVODOPA
     Indication: PARKINSON^S DISEASE
     Route: 048
     Dates: start: 20170919, end: 20170927

REACTIONS (5)
  - Oxygen saturation decreased [Recovered/Resolved]
  - Aspiration [Recovered/Resolved]
  - Asthenia [Recovered/Resolved]
  - Drug abuse [Unknown]
  - Procedural complication [Recovered/Resolved]

NARRATIVE: CASE EVENT DATE: 2016
